FAERS Safety Report 25439355 (Version 1)
Quarter: 2025Q2

REPORT INFORMATION
  Report Type: Spontaneous
  Country: PL (occurrence: PL)
  Receive Date: 20250616
  Receipt Date: 20250616
  Transmission Date: 20250717
  Serious: Yes (Life-Threatening)
  Sender: GE HEALTHCARE
  Company Number: None

PATIENT
  Age: 71 Year
  Sex: Male
  Weight: 79 kg

DRUGS (1)
  1. OMNIPAQUE [Suspect]
     Active Substance: IOHEXOL
     Indication: Computerised tomogram spine
     Route: 042
     Dates: start: 20211007, end: 20211007

REACTIONS (7)
  - Hyporesponsive to stimuli [Unknown]
  - Pallor [Unknown]
  - Blood pressure decreased [Unknown]
  - Vision blurred [Unknown]
  - Hyperhidrosis [Unknown]
  - Erythema [Unknown]
  - Pruritus [Unknown]

NARRATIVE: CASE EVENT DATE: 20211007
